FAERS Safety Report 4907255-5 (Version None)
Quarter: 2006Q1

REPORT INFORMATION
  Report Type: 
  Country: None (occurrence: None)
  Receive Date: 20060207
  Receipt Date: 20060131
  Transmission Date: 20060701
  Serious: Yes (Life-Threatening, Hospitalization)
  Sender: FDA-Public Use
  Company Number: US-2006-001946

PATIENT
  Age: 55 Year
  Sex: Female
  Weight: 70.3 kg

DRUGS (1)
  1. MAGNEVIST [Suspect]
     Indication: NUCLEAR MAGNETIC RESONANCE IMAGING
     Dosage: 15 ML, 1 DOSE, INTRAVENOUS
     Route: 042
     Dates: start: 20060131, end: 20060131

REACTIONS (6)
  - ANAPHYLACTIC REACTION [None]
  - COLD SWEAT [None]
  - NAUSEA [None]
  - RESPIRATORY ARREST [None]
  - RESPIRATORY RATE INCREASED [None]
  - RETCHING [None]
